FAERS Safety Report 5097662-5 (Version None)
Quarter: 2006Q3

REPORT INFORMATION
  Report Type: 
  Country: None (occurrence: None)
  Receive Date: 20060831
  Receipt Date: 20060822
  Transmission Date: 20061208
  Serious: Yes (Other)
  Sender: FDA-Public Use
  Company Number: THYM-11011

PATIENT
  Age: 68 Year
  Sex: Female
  Weight: 81.4 kg

DRUGS (17)
  1. THYMOGLOBULIN [Suspect]
     Indication: RENAL TRANSPLANT
     Dosage: 125 MG QD IV
     Route: 042
     Dates: start: 20060708, end: 20060708
  2. THYMOGLOBULIN [Suspect]
     Indication: RENAL TRANSPLANT
     Dosage: 125 MG QD IV
     Route: 042
     Dates: start: 20060711, end: 20060712
  3. CELLCEPT [Concomitant]
  4. TACROLIMUS [Concomitant]
  5. PREDNISONE TAB [Concomitant]
  6. LEVAQUIN [Concomitant]
  7. FLUCONAZOLE [Concomitant]
  8. VALCYTE [Concomitant]
  9. PREVACID [Concomitant]
  10. TOPROL-XL [Concomitant]
  11. LEVOTHYROXINE SODIUM [Concomitant]
  12. NORVASC [Concomitant]
  13. TRAMADOL HCL [Concomitant]
  14. LANTUS [Concomitant]
  15. QUININE SULFATE [Concomitant]
  16. HUMALOG [Concomitant]
  17. LOVASTATIN [Concomitant]

REACTIONS (4)
  - ENTEROBACTER INFECTION [None]
  - KIDNEY TRANSPLANT REJECTION [None]
  - STREPTOCOCCAL INFECTION [None]
  - THROMBOTIC MICROANGIOPATHY [None]
